FAERS Safety Report 12903430 (Version 1)
Quarter: 2016Q4

REPORT INFORMATION
  Report Type: Spontaneous
  Country: US (occurrence: US)
  Receive Date: 20161102
  Receipt Date: 20161102
  Transmission Date: 20170207
  Serious: Yes (Other)
  Sender: FDA-Public Use
  Company Number: US-BAYER-2016-205411

PATIENT
  Age: 19 Year
  Sex: Female

DRUGS (1)
  1. CIPRO [Suspect]
     Active Substance: CIPROFLOXACIN HYDROCHLORIDE
     Dosage: UNK
     Route: 048

REACTIONS (15)
  - Vascular pain [None]
  - Pallor [None]
  - Visual impairment [None]
  - Tremor [None]
  - Palpitations [None]
  - Dizziness [None]
  - Dyspnoea [None]
  - Dysstasia [None]
  - Malaise [None]
  - Head discomfort [None]
  - Hospitalisation [None]
  - Anxiety [None]
  - Panic attack [None]
  - Mood altered [None]
  - Feeling abnormal [None]
